FAERS Safety Report 5537743-2 (Version None)
Quarter: 2007Q4

REPORT INFORMATION
  Report Type: 
  Country: None (occurrence: None)
  Receive Date: 20071207
  Receipt Date: 20071129
  Transmission Date: 20080405
  Serious: Yes (Hospitalization, Other)
  Sender: FDA-Public Use
  Company Number: FR-WYE-H01505607

PATIENT
  Sex: Female

DRUGS (3)
  1. EUPANTOL [Suspect]
     Indication: GASTRIC DISORDER
     Route: 048
     Dates: start: 20061001, end: 20070301
  2. PERIDYS [Concomitant]
     Dosage: UNKNOWN
     Route: 048
  3. MOVICOL [Concomitant]
     Dosage: UNKNOWN
     Route: 048

REACTIONS (4)
  - DEPRESSED MOOD [None]
  - INTENTIONAL SELF-INJURY [None]
  - ROAD TRAFFIC ACCIDENT [None]
  - SUICIDE ATTEMPT [None]
